FAERS Safety Report 6451959-2 (Version None)
Quarter: 2009Q4

REPORT INFORMATION
  Report Type: 
  Country: None (occurrence: None)
  Receive Date: 20091123
  Receipt Date: 20091113
  Transmission Date: 20100525
  Serious: Yes (Other)
  Sender: FDA-Public Use
  Company Number: BR-ABBOTT-09P-020-0608401-00

PATIENT
  Sex: Female
  Weight: 88 kg

DRUGS (5)
  1. HUMIRA [Suspect]
     Indication: RHEUMATOID ARTHRITIS
     Route: 058
     Dates: start: 20080101
  2. ARAVA [Concomitant]
     Indication: RHEUMATOID ARTHRITIS
     Route: 048
  3. DEFLANIL [Concomitant]
     Indication: RHEUMATOID ARTHRITIS
     Route: 048
  4. ARCOXIA [Concomitant]
     Indication: RHEUMATOID ARTHRITIS
     Route: 048
  5. CARBAMAZEPINE [Concomitant]
     Indication: SLEEP DISORDER THERAPY
     Route: 048

REACTIONS (6)
  - BENIGN NEOPLASM [None]
  - HYPOAESTHESIA [None]
  - OEDEMA PERIPHERAL [None]
  - PAIN [None]
  - PAIN IN EXTREMITY [None]
  - PYREXIA [None]
